FAERS Safety Report 7381445-7 (Version None)
Quarter: 2011Q1

REPORT INFORMATION
  Report Type: 
  Country: None (occurrence: None)
  Receive Date: 20110329
  Receipt Date: 20110324
  Transmission Date: 20110831
  Serious: Yes (Hospitalization)
  Sender: FDA-Public Use
  Company Number: FR-PFIZER INC-2011065305

PATIENT
  Age: 35 Year
  Sex: Male

DRUGS (9)
  1. CIFLOX [Concomitant]
     Indication: OSTEITIS
     Dosage: UNK
     Dates: start: 20110228, end: 20110302
  2. CIFLOX [Concomitant]
     Dosage: UNK
     Dates: start: 20110304
  3. GABAPENTIN [Concomitant]
  4. LEXOMIL [Concomitant]
  5. LOVENOX [Concomitant]
  6. ACUPAN [Concomitant]
  7. PARACETAMOL [Concomitant]
  8. ACTISKENAN [Concomitant]
  9. TAZOCILLINE [Suspect]
     Indication: OSTEITIS
     Dosage: UNK
     Route: 042
     Dates: start: 20110215, end: 20110302

REACTIONS (3)
  - CYTOLYTIC HEPATITIS [None]
  - RASH [None]
  - NEUTROPENIA [None]
